FAERS Safety Report 11516738 (Version 2)
Quarter: 2015Q4

REPORT INFORMATION
  Report Type: Spontaneous
  Country: RU (occurrence: RU)
  Receive Date: 20150917
  Receipt Date: 20151102
  Transmission Date: 20160304
  Serious: Yes (Death, Other)
  Sender: FDA-Public Use
  Company Number: RU-ALEXION PHARMACEUTICALS INC-A201503461

PATIENT
  Age: 25 Year
  Sex: Female

DRUGS (1)
  1. SOLIRIS [Suspect]
     Active Substance: ECULIZUMAB
     Indication: HAEMOLYTIC URAEMIC SYNDROME
     Dosage: 1200 MG, QW
     Route: 042
     Dates: start: 20150821

REACTIONS (2)
  - Incorrect dose administered [Not Recovered/Not Resolved]
  - Cardiac failure [Fatal]

NARRATIVE: CASE EVENT DATE: 20150821
